FAERS Safety Report 11100130 (Version 2)
Quarter: 2015Q2

REPORT INFORMATION
  Report Type: Spontaneous
  Country: JP (occurrence: JP)
  Receive Date: 20150508
  Receipt Date: 20150601
  Transmission Date: 20150821
  Serious: Yes (Death)
  Sender: FDA-Public Use
  Company Number: JP-MALLINCKRODT-T201502394

PATIENT
  Age: 69 Year
  Sex: Male
  Weight: 36 kg

DRUGS (14)
  1. METHADONE [Suspect]
     Active Substance: METHADONE HYDROCHLORIDE
     Indication: CANCER PAIN
     Dosage: 10 MG (20 MG DAILY DOSE)
     Route: 048
     Dates: start: 20150126, end: 20150227
  2. PREPENON [Concomitant]
     Active Substance: MORPHINE HYDROCHLORIDE
     Dosage: 36 MG
     Route: 051
     Dates: start: 20150213, end: 20150214
  3. PREPENON [Concomitant]
     Active Substance: MORPHINE HYDROCHLORIDE
     Dosage: 48 MG
     Route: 051
     Dates: start: 20150214, end: 20150215
  4. FENTOS [Concomitant]
     Active Substance: FENTANYL
     Indication: PRODUCT USED FOR UNKNOWN INDICATION
     Dosage: 10 MG
     Route: 062
     Dates: start: 20141120, end: 20141202
  5. FENTOS [Concomitant]
     Active Substance: FENTANYL
     Dosage: 4MG
     Route: 062
     Dates: start: 20141210, end: 20141217
  6. METHADONE [Suspect]
     Active Substance: METHADONE HYDROCHLORIDE
     Dosage: 5 MG (15 MG DAILY DOSE)
     Route: 048
     Dates: start: 20141203, end: 20141210
  7. METHADONE [Suspect]
     Active Substance: METHADONE HYDROCHLORIDE
     Dosage: 10 MG, (20 MG DAILY DOSE)
     Route: 048
     Dates: start: 20141210, end: 20141217
  8. PREPENON [Concomitant]
     Active Substance: MORPHINE HYDROCHLORIDE
     Dosage: 24 MG
     Route: 051
     Dates: start: 20150212, end: 20150213
  9. PREPENON [Concomitant]
     Active Substance: MORPHINE HYDROCHLORIDE
     Dosage: 72 MG
     Route: 051
     Dates: start: 20150220, end: 20150226
  10. PREPENON [Concomitant]
     Active Substance: MORPHINE HYDROCHLORIDE
     Dosage: 96 MG
     Route: 051
     Dates: start: 20150226, end: 20150305
  11. OXINORM [Concomitant]
     Active Substance: OXYCODONE HYDROCHLORIDE
     Dosage: 20 MG, P.R.N.
     Route: 048
     Dates: start: 20141202
  12. FENTOS [Concomitant]
     Active Substance: FENTANYL
     Dosage: 6 MG
     Route: 062
     Dates: start: 20141202, end: 20141210
  13. PREPENON [Concomitant]
     Active Substance: MORPHINE HYDROCHLORIDE
     Dosage: 60 MG
     Route: 051
     Dates: start: 20150215, end: 20150220
  14. METHADONE [Suspect]
     Active Substance: METHADONE HYDROCHLORIDE
     Dosage: 15 MG (30 MG DAILY DOSE)
     Route: 048
     Dates: start: 20141217, end: 20150126

REACTIONS (3)
  - Somnolence [Recovering/Resolving]
  - Renal cancer [Fatal]
  - Hypokalaemia [Recovering/Resolving]

NARRATIVE: CASE EVENT DATE: 20150123
